FAERS Safety Report 6375773-1 (Version None)
Quarter: 2009Q3

REPORT INFORMATION
  Report Type: 
  Country: None (occurrence: None)
  Receive Date: 20090921
  Receipt Date: 20090904
  Transmission Date: 20100115
  Serious: Yes (Death)
  Sender: FDA-Public Use
  Company Number: AE 2009-109

PATIENT
  Age: 41 Year
  Sex: Female

DRUGS (8)
  1. FAZACLO ODT [Suspect]
     Dosage: 200 MG QHS PO
     Route: 048
     Dates: start: 20090727, end: 20090826
  2. DOXYCYCLINE [Concomitant]
  3. FOLIC ACID [Concomitant]
  4. HALOPERIDOL [Concomitant]
  5. LITHIUM [Concomitant]
  6. CARBONATE [Concomitant]
  7. RISPERIDONE [Concomitant]
  8. XOPENEX [Concomitant]

REACTIONS (1)
  - DEATH [None]
